FAERS Safety Report 7902250-6 (Version None)
Quarter: 2011Q4

REPORT INFORMATION
  Report Type: 
  Country: None (occurrence: None)
  Receive Date: 20111108
  Receipt Date: 20111101
  Transmission Date: 20120403
  Serious: Yes (Other)
  Sender: FDA-Public Use
  Company Number: US-US-EMD SERONO, INC.-7087434

PATIENT
  Sex: Female
  Weight: 77 kg

DRUGS (5)
  1. FOLIC ACID [Concomitant]
  2. MULTI-VITAMIN [Concomitant]
  3. REBIF [Suspect]
     Indication: MULTIPLE SCLEROSIS
     Route: 058
     Dates: start: 20090512
  4. UNSPECIFIED OVER THE COUNTER MEDICATION [Concomitant]
     Indication: PREMEDICATION
  5. IRON [Concomitant]

REACTIONS (5)
  - BLOOD PRESSURE ABNORMAL [None]
  - NASOPHARYNGITIS [None]
  - OPTIC NEURITIS [None]
  - INJECTION SITE HAEMATOMA [None]
  - CHILLS [None]
